FAERS Safety Report 10553675 (Version 1)
Quarter: 2014Q4

REPORT INFORMATION
  Report Type: Spontaneous
  Country: CA (occurrence: CA)
  Receive Date: 20141030
  Receipt Date: 20141030
  Transmission Date: 20150529
  Serious: No
  Sender: FDA-Public Use
  Company Number: PHHY2014CA138557

PATIENT
  Sex: Female

DRUGS (1)
  1. TASIGNA [Suspect]
     Active Substance: NILOTINIB
     Indication: CHRONIC MYELOID LEUKAEMIA
     Dosage: 150 MG, TWICE A DAY
     Route: 065
     Dates: start: 201406

REACTIONS (4)
  - Inappropriate schedule of drug administration [Unknown]
  - Anxiety [Unknown]
  - Osteoarthritis [Not Recovered/Not Resolved]
  - Skin discolouration [Unknown]
